FAERS Safety Report 18747246 (Version 1)
Quarter: 2021Q1

REPORT INFORMATION
  Report Type: Spontaneous
  Country: US (occurrence: US)
  Receive Date: 20210115
  Receipt Date: 20210115
  Transmission Date: 20210419
  Serious: Yes (Other)
  Sender: FDA-Public Use
  Company Number: US-GALDERMA-US2021000770

PATIENT
  Age: 24 Year
  Sex: Female

DRUGS (2)
  1. DOXYCYCLINE. [Suspect]
     Active Substance: DOXYCYCLINE
     Indication: ACUTE SINUSITIS
     Route: 065
  2. OSELTAMIVIR [Concomitant]
     Active Substance: OSELTAMIVIR
     Indication: INFLUENZA
     Route: 065

REACTIONS (9)
  - Eyelid oedema [Recovered/Resolved]
  - Proteinuria [Recovered/Resolved]
  - Intentional product use issue [Recovered/Resolved]
  - Glomerulonephritis minimal lesion [Recovered/Resolved]
  - Red blood cells urine positive [Recovered/Resolved]
  - Blood pressure increased [Recovered/Resolved]
  - Dizziness [Recovered/Resolved]
  - Peripheral swelling [Recovered/Resolved]
  - Circumoral oedema [Recovered/Resolved]
